FAERS Safety Report 5992402-7 (Version None)
Quarter: 2008Q4

REPORT INFORMATION
  Report Type: 
  Country: None (occurrence: None)
  Receive Date: 20081202
  Receipt Date: 20080114
  Transmission Date: 20090506
  Serious: Yes (Disabling)
  Sender: FDA-Public Use
  Company Number: WAES 0705USA01539

PATIENT
  Age: 48 Year
  Sex: Female
  Weight: 47.6277 kg

DRUGS (1)
  1. FOSAMAX [Suspect]
     Indication: OSTEOPOROSIS
     Dosage: 70 MG/PO
     Route: 048
     Dates: start: 19970101, end: 20051001

REACTIONS (22)
  - BACK PAIN [None]
  - DYSPEPSIA [None]
  - EXOSTOSIS [None]
  - GINGIVAL ATROPHY [None]
  - HAEMANGIOMA [None]
  - LENTIGO [None]
  - MELANOCYTIC NAEVUS [None]
  - NEOPLASM SKIN [None]
  - ORAL INFECTION [None]
  - OSTEOARTHRITIS [None]
  - OSTEONECROSIS [None]
  - PELVIC PAIN [None]
  - PERIODONTAL DISEASE [None]
  - RHEUMATOID ARTHRITIS [None]
  - SEBORRHOEIC KERATOSIS [None]
  - SKIN LESION [None]
  - STRESS [None]
  - THROMBOSIS [None]
  - TOOTH EROSION [None]
  - TOOTH FRACTURE [None]
  - TOOTH LOSS [None]
  - VAGINAL INFECTION [None]
